FAERS Safety Report 24823356 (Version 3)
Quarter: 2025Q3

REPORT INFORMATION
  Report Type: Report from Study
  Country: US (occurrence: US)
  Receive Date: 20250109
  Receipt Date: 20250721
  Transmission Date: 20251020
  Serious: Yes (Other)
  Sender: ABBVIE
  Company Number: US-ABBVIE-6076096

PATIENT
  Age: 71 Year
  Sex: Female

DRUGS (3)
  1. VENCLEXTA [Suspect]
     Active Substance: VENETOCLAX
     Indication: Leukaemia
     Route: 048
     Dates: start: 202412
  2. VENCLEXTA [Suspect]
     Active Substance: VENETOCLAX
     Indication: Leukaemia
     Dosage: DOSE: 200 MG DAILY FOR 14 DAYS ON, 14 DAYS OFF
     Route: 048
     Dates: start: 20241221
  3. REVUFORJ [Concomitant]
     Active Substance: REVUMENIB CITRATE
     Indication: Leukaemia
     Dates: start: 20241221

REACTIONS (4)
  - Full blood count decreased [Unknown]
  - Nausea [Unknown]
  - Platelet count decreased [Unknown]
  - Neutrophil count decreased [Unknown]

NARRATIVE: CASE EVENT DATE: 20241201
